FAERS Safety Report 24790639 (Version 2)
Quarter: 2025Q1

REPORT INFORMATION
  Report Type: Report from Study
  Country: MY (occurrence: MY)
  Receive Date: 20241230
  Receipt Date: 20250108
  Transmission Date: 20250409
  Serious: Yes (Other)
  Sender: GENMAB
  Company Number: MY-ABBVIE-6057115

PATIENT
  Age: 46 Year
  Sex: Female
  Weight: 53.6 kg

DRUGS (1)
  1. EPCORITAMAB [Suspect]
     Active Substance: EPCORITAMAB
     Indication: Lymphoma
     Dosage: 48 MILLIGRAM,1Q2W
     Route: 058
     Dates: start: 20240704

REACTIONS (1)
  - Pneumonia fungal [Recovering/Resolving]

NARRATIVE: CASE EVENT DATE: 20241118
